FAERS Safety Report 24347149 (Version 2)
Quarter: 2024Q4

REPORT INFORMATION
  Report Type: Spontaneous
  Country: US (occurrence: US)
  Receive Date: 20240921
  Receipt Date: 20241014
  Transmission Date: 20250114
  Serious: No
  Sender: HETERO
  Company Number: US-HETERO-HET2024US03153

PATIENT
  Sex: Male

DRUGS (1)
  1. PREGABALIN [Suspect]
     Active Substance: PREGABALIN
     Indication: Neuropathy peripheral
     Dosage: 150 MILLIGRAM, BID
     Route: 065
     Dates: start: 20240911

REACTIONS (2)
  - Sleep disorder [Unknown]
  - Drug ineffective [Unknown]

NARRATIVE: CASE EVENT DATE: 20240912
